FAERS Safety Report 21943327 (Version 4)
Quarter: 2023Q1

REPORT INFORMATION
  Report Type: Report from Study
  Country: US (occurrence: US)
  Receive Date: 20230202
  Receipt Date: 20230220
  Transmission Date: 20230417
  Serious: Yes (Death)
  Sender: FDA-Public Use
  Company Number: US-002147023-NVSC2023US019370

PATIENT
  Sex: Male

DRUGS (1)
  1. TABRECTA [Suspect]
     Active Substance: CAPMATINIB
     Indication: Neoplasm malignant
     Dosage: UNK
     Route: 065

REACTIONS (4)
  - Death [Fatal]
  - Nausea [Unknown]
  - Drug ineffective [Unknown]
  - Product availability issue [Unknown]
